FAERS Safety Report 4498052-6 (Version None)
Quarter: 2004Q4

REPORT INFORMATION
  Report Type: 
  Country: None (occurrence: None)
  Receive Date: 20041109
  Receipt Date: 20041109
  Transmission Date: 20050328
  Serious: Yes (Hospitalization)
  Sender: FDA-Public Use
  Company Number: None

PATIENT
  Sex: Female
  Weight: 87.5442 kg

DRUGS (1)
  1. VIOXX [Suspect]
     Indication: PAIN
     Dosage: 25-50MG  DAILY  PRN  ORAL
     Route: 048

REACTIONS (3)
  - CHEST PAIN [None]
  - OEDEMA [None]
  - WEIGHT INCREASED [None]
